FAERS Safety Report 18559217 (Version 3)
Quarter: 2023Q4

REPORT INFORMATION
  Report Type: Other
  Country: DE (occurrence: None)
  Receive Date: 20201130
  Receipt Date: 20231031
  Transmission Date: 20240110
  Serious: Yes (Death, Hospitalization)
  Sender: FDA-Public Use
  Company Number: DE-ROCHE-2718672

PATIENT
  Age: 76 Year
  Sex: Female

DRUGS (10)
  1. TOCILIZUMAB [Suspect]
     Active Substance: TOCILIZUMAB
     Indication: Rheumatoid arthritis
     Route: 058
  2. CELEBREX [Concomitant]
     Active Substance: CELECOXIB
  3. DULOXETINE [Concomitant]
     Active Substance: DULOXETINE
  4. METOPROLOL [Concomitant]
     Active Substance: METOPROLOL
  5. PREDNISOLONE [Concomitant]
     Active Substance: PREDNISOLONE
  6. ALENDRONIC ACID [Concomitant]
     Active Substance: ALENDRONIC ACID
  7. GABAPENTIN [Concomitant]
     Active Substance: GABAPENTIN
  8. PANTOPRAZOLE [Concomitant]
     Active Substance: PANTOPRAZOLE
  9. CETIRIZINE [Concomitant]
     Active Substance: CETIRIZINE HYDROCHLORIDE
  10. VITAMIN D3 [Concomitant]
     Active Substance: CHOLECALCIFEROL

REACTIONS (4)
  - B-cell small lymphocytic lymphoma [Not Recovered/Not Resolved]
  - Lymphocytic leukaemia [Not Recovered/Not Resolved]
  - Abdominal symptom [Not Recovered/Not Resolved]
  - Death [Fatal]

NARRATIVE: CASE EVENT DATE: 20200701
